FAERS Safety Report 20125683 (Version 1)
Quarter: 2021Q4

REPORT INFORMATION
  Report Type: Report from Study
  Country: FR (occurrence: FR)
  Receive Date: 20211129
  Receipt Date: 20211129
  Transmission Date: 20220303
  Serious: Yes (Hospitalization, Other)
  Sender: FDA-Public Use
  Company Number: FR-ROCHE-2674054

PATIENT
  Age: 55 Year
  Sex: Female
  Weight: 80 kg

DRUGS (13)
  1. CARBOPLATIN [Suspect]
     Active Substance: CARBOPLATIN
     Indication: Non-small cell lung cancer metastatic
     Dosage: UNK, START 21-APR-2020
     Route: 065
     Dates: end: 20200813
  2. PACLITAXEL [Suspect]
     Active Substance: PACLITAXEL
     Indication: Non-small cell lung cancer metastatic
     Dosage: UNK, START 21-APR-2020
     Route: 065
     Dates: end: 20200813
  3. ATEZOLIZUMAB [Suspect]
     Active Substance: ATEZOLIZUMAB
     Indication: Non-small cell lung cancer metastatic
     Dosage: 1200 MILLIGRAM, Q3W
     Route: 042
     Dates: start: 20200310
  4. PRIMPERAN [Concomitant]
     Active Substance: METOCLOPRAMIDE HYDROCHLORIDE
     Indication: Prophylaxis
     Dosage: UNK, START 17-APR-2020
  5. OXAZEPAM [Concomitant]
     Active Substance: OXAZEPAM
     Indication: Prophylaxis
     Dosage: UNK UNK, QD, START 12-MAY-2020
  6. ONDANSETRON [Concomitant]
     Active Substance: ONDANSETRON
     Indication: Prophylaxis
     Dosage: UNK UNK, 1 MONTHLY, START 17-APR-2020
  7. AMOXICILLINE                       /00249601/ [Concomitant]
     Dosage: UNK
     Dates: start: 20200227, end: 20200304
  8. AIROMIR                            /00139501/ [Concomitant]
     Indication: Prophylaxis
     Dosage: UNK, START 21-APR-2020
  9. PANTOPRAZOLE [Concomitant]
     Active Substance: PANTOPRAZOLE
     Indication: Prophylaxis
     Dosage: UNK UNK, QD
     Dates: start: 20200206
  10. XANAX [Concomitant]
     Active Substance: ALPRAZOLAM
     Indication: Prophylaxis
     Dosage: UNK UNK, 1 MONTHLY, START 17-APR-2020
  11. ESCITALOPRAM OXALATE [Concomitant]
     Active Substance: ESCITALOPRAM OXALATE
     Indication: Prophylaxis
     Dosage: UNK UNK, QD, START 12-MAY-2020
  12. SOLUPRED                           /00016201/ [Concomitant]
     Indication: Prophylaxis
     Dosage: UNK UNK, 1 MONTHLY, START 17-APR-2020
  13. EMEND                              /01627301/ [Concomitant]
     Indication: Prophylaxis
     Dosage: UNK UNK, 1 MONTHLY, START 17-APR-2020

REACTIONS (3)
  - Viral infection [Recovered/Resolved]
  - Autoimmune hepatitis [Recovered/Resolved]
  - Neutropenia [Recovered/Resolved]

NARRATIVE: CASE EVENT DATE: 20200321
